FAERS Safety Report 21581572 (Version 1)
Quarter: 2022Q4

REPORT INFORMATION
  Report Type: Report from Study
  Country: US (occurrence: US)
  Receive Date: 20221111
  Receipt Date: 20221111
  Transmission Date: 20230112
  Serious: Yes (Other)
  Sender: FDA-Public Use
  Company Number: US-ABBVIE-22K-163-4454494-00

PATIENT
  Age: 63 Year
  Sex: Male

DRUGS (1)
  1. SKYRIZI [Suspect]
     Active Substance: RISANKIZUMAB-RZAA
     Indication: Psoriasis
     Route: 058
     Dates: start: 20210112

REACTIONS (5)
  - Plasma cell myeloma [Unknown]
  - Psoriasis [Unknown]
  - Protein total increased [Unknown]
  - Therapeutic response shortened [Unknown]
  - Pollakiuria [Unknown]

NARRATIVE: CASE EVENT DATE: 20220601
